FAERS Safety Report 15192341 (Version 1)
Quarter: 2018Q3

REPORT INFORMATION
  Report Type: Spontaneous
  Country: US (occurrence: US)
  Receive Date: 20180724
  Receipt Date: 20180724
  Transmission Date: 20181010
  Serious: No
  Sender: FDA-Public Use
  Company Number: US-BAUSCH-BL-2017-010226

PATIENT
  Age: 72 Year
  Sex: Female

DRUGS (14)
  1. ZOLOFT [Concomitant]
     Active Substance: SERTRALINE HYDROCHLORIDE
     Indication: PRODUCT USED FOR UNKNOWN INDICATION
     Route: 048
  2. VITAMIN D3 2000 [Concomitant]
     Indication: SUPPLEMENTATION THERAPY
     Dosage: 2000
     Route: 048
  3. SUPER B COMPLEX [Concomitant]
     Active Substance: CYANOCOBALAMIN\DEXPANTHENOL\NIACINAMIDE\PYRIDOXINE HYDROCHLORIDE\RIBOFLAVIN 5^-PHOSPHATE SODIUM\THIAMINE HYDROCHLORIDE\VITAMIN B COMPLEX
     Indication: SUPPLEMENTATION THERAPY
     Route: 048
  4. GABAPENTIN. [Concomitant]
     Active Substance: GABAPENTIN
     Indication: NEUROPATHY PERIPHERAL
     Route: 048
  5. SYSTANE EYEDROPS [Concomitant]
     Active Substance: POLYETHYLENE GLYCOL 400\PROPYLENE GLYCOL
     Indication: ROUTINE HEALTH MAINTENANCE
     Route: 047
  6. LOSARTAN. [Concomitant]
     Active Substance: LOSARTAN
     Indication: HYPERTENSION
     Route: 048
  7. LATANOPROST (AKORN) [Concomitant]
     Indication: GLAUCOMA
     Route: 047
  8. LUTEIN [Concomitant]
     Active Substance: LUTEIN
     Indication: MACULAR DEGENERATION
     Route: 048
  9. TRAMADOL. [Concomitant]
     Active Substance: TRAMADOL
     Indication: PAIN
     Route: 048
  10. TRAMADOL. [Concomitant]
     Active Substance: TRAMADOL
     Indication: NEUROPATHY PERIPHERAL
  11. OMEPRAZOLE. [Concomitant]
     Active Substance: OMEPRAZOLE
     Indication: GASTRIC DISORDER
     Route: 048
  12. SYNTHROID [Concomitant]
     Active Substance: LEVOTHYROXINE SODIUM
     Indication: BLOOD PARATHYROID HORMONE DECREASED
     Route: 048
  13. ISTALOL [Suspect]
     Active Substance: TIMOLOL MALEATE
     Indication: GLAUCOMA
     Route: 047
     Dates: start: 20170414
  14. LUTEIN [Concomitant]
     Active Substance: LUTEIN
     Indication: SUPPLEMENTATION THERAPY

REACTIONS (2)
  - Diarrhoea [Recovered/Resolved]
  - Abdominal pain [Recovering/Resolving]

NARRATIVE: CASE EVENT DATE: 20170414
